FAERS Safety Report 13821673 (Version 1)
Quarter: 2017Q3

REPORT INFORMATION
  Report Type: Spontaneous
  Country: US (occurrence: US)
  Receive Date: 20170801
  Receipt Date: 20170801
  Transmission Date: 20171127
  Serious: No
  Sender: FDA-Public Use
  Company Number: US-009507513-1707USA004855

PATIENT
  Age: 70 Year
  Sex: Female
  Weight: 70.3 kg

DRUGS (8)
  1. KEYTRUDA [Suspect]
     Active Substance: PEMBROLIZUMAB
     Indication: LUNG NEOPLASM MALIGNANT
     Dosage: UNK UNK, Q3W
     Route: 042
     Dates: start: 201705
  2. DEXAMETHASONE (+) DIPHENHYDRAMINE HYDROCHLORIDE (+) NYSTATIN (+) TETRA (MIRACLE MOUTHWASH) [Suspect]
     Active Substance: DEXAMETHASONE\DIPHENHYDRAMINE\NYSTATIN\TETRACYCLINE
     Indication: FEEDING DISORDER
  3. SULFASALAZINE. [Concomitant]
     Active Substance: SULFASALAZINE
     Indication: PRODUCT USED FOR UNKNOWN INDICATION
     Dosage: 500 MG, BID
     Route: 065
  4. CARVEDILOL. [Concomitant]
     Active Substance: CARVEDILOL
     Indication: PRODUCT USED FOR UNKNOWN INDICATION
     Dosage: 12.5 MG, BID
     Route: 065
  5. DEXAMETHASONE (+) DIPHENHYDRAMINE HYDROCHLORIDE (+) NYSTATIN (+) TETRA (MIRACLE MOUTHWASH) [Suspect]
     Active Substance: DEXAMETHASONE\DIPHENHYDRAMINE\NYSTATIN\TETRACYCLINE
     Indication: DRY MOUTH
     Dosage: UNK UNK, UNKNOWN
     Route: 048
  6. SIMVASTATIN TABLETS, USP [Concomitant]
     Active Substance: SIMVASTATIN
     Indication: PRODUCT USED FOR UNKNOWN INDICATION
     Dosage: 40 MG, QD
     Route: 048
  7. FOSINOPRIL SODIUM. [Concomitant]
     Active Substance: FOSINOPRIL SODIUM
     Indication: PRODUCT USED FOR UNKNOWN INDICATION
     Dosage: 10 MG, QD
     Route: 065
  8. BAYER ASPIRIN [Concomitant]
     Active Substance: ASPIRIN
     Indication: PRODUCT USED FOR UNKNOWN INDICATION
     Dosage: 81 MG, QD
     Route: 065

REACTIONS (8)
  - Nasal dryness [Unknown]
  - Asthenia [Unknown]
  - Dry eye [Unknown]
  - Mastication disorder [Unknown]
  - Weight decreased [Unknown]
  - Dry mouth [Unknown]
  - Feeding disorder [Unknown]
  - Drug ineffective [Unknown]

NARRATIVE: CASE EVENT DATE: 2017
